FAERS Safety Report 7551773-0 (Version None)
Quarter: 2011Q2

REPORT INFORMATION
  Report Type: 
  Country: None (occurrence: None)
  Receive Date: 20110616
  Receipt Date: 20110609
  Transmission Date: 20111010
  Serious: Yes (Hospitalization)
  Sender: FDA-Public Use
  Company Number: B0713226A

PATIENT
  Sex: Female
  Weight: 62 kg

DRUGS (4)
  1. XELODA [Suspect]
     Indication: BREAST CANCER
     Dosage: 1500MG PER DAY
     Route: 048
     Dates: start: 20101005, end: 20101205
  2. XELODA [Suspect]
     Dosage: 900MG PER DAY
     Route: 048
     Dates: start: 20110104, end: 20110315
  3. XELODA [Suspect]
     Dosage: 900MG PER DAY
     Route: 048
     Dates: start: 20110330, end: 20110401
  4. TYKERB [Suspect]
     Indication: BREAST CANCER
     Dosage: 1250MG PER DAY
     Route: 048
     Dates: start: 20101005, end: 20110405

REACTIONS (2)
  - PNEUMONIA [None]
  - INTERSTITIAL LUNG DISEASE [None]
